FAERS Safety Report 14168044 (Version 1)
Quarter: 2017Q4

REPORT INFORMATION
  Report Type: Spontaneous
  Country: US (occurrence: US)
  Receive Date: 20171107
  Receipt Date: 20171107
  Transmission Date: 20180321
  Serious: No
  Sender: FDA-Public Use
  Company Number: US-SA-2017SA164539

PATIENT
  Sex: Male

DRUGS (6)
  1. TOUJEO [Suspect]
     Active Substance: INSULIN GLARGINE
     Dosage: DOSE:10 UNIT(S)
     Route: 051
     Dates: start: 201708, end: 201708
  2. SOLOSTAR [Suspect]
     Active Substance: DEVICE
     Dates: start: 201708, end: 201708
  3. TOUJEO [Suspect]
     Active Substance: INSULIN GLARGINE
     Dosage: DOSE:5 UNIT(S)
     Route: 051
     Dates: start: 201708, end: 201708
  4. SOLOSTAR [Suspect]
     Active Substance: DEVICE
     Dates: start: 201708, end: 201708
  5. SOLOSTAR [Suspect]
     Active Substance: DEVICE
     Dates: start: 201708
  6. TOUJEO [Suspect]
     Active Substance: INSULIN GLARGINE
     Dosage: DOSE:15 UNIT(S)
     Route: 051
     Dates: start: 201708

REACTIONS (2)
  - Blood glucose abnormal [Unknown]
  - Product use issue [Unknown]
